FAERS Safety Report 6969577-6 (Version None)
Quarter: 2010Q3

REPORT INFORMATION
  Report Type: 
  Country: None (occurrence: None)
  Receive Date: 20100907
  Receipt Date: 20100907
  Transmission Date: 20110219
  Serious: Yes (Other)
  Sender: FDA-Public Use
  Company Number: None

PATIENT
  Age: 56 Year
  Sex: Female
  Weight: 86.1834 kg

DRUGS (1)
  1. ICY HOT MEDICATED PATCH MENTHOL 5% CHATTEM, INC. [Suspect]
     Indication: MUSCLE STRAIN
     Dosage: 1 ARM, NECK + LEG PATH, 3 PATCHES IN 24 HR TOP
     Route: 061
     Dates: start: 20100829, end: 20100830

REACTIONS (1)
  - BURNS SECOND DEGREE [None]
